FAERS Safety Report 9359321 (Version 1)
Quarter: 2013Q2

REPORT INFORMATION
  Report Type: Spontaneous
  Country: HR (occurrence: HR)
  Receive Date: 20130620
  Receipt Date: 20130620
  Transmission Date: 20140414
  Serious: Yes (Hospitalization)
  Sender: FDA-Public Use
  Company Number: PHHY2013HR062585

PATIENT
  Age: 79 Year
  Sex: Male

DRUGS (6)
  1. KLAVOCIN [Suspect]
     Indication: PHARYNGITIS
     Dosage: 2 DF, DAILY
     Route: 048
     Dates: start: 20130422, end: 20130505
  2. IBUPROFEN [Suspect]
     Indication: PAIN
     Dosage: 400 MG, TID
     Route: 048
     Dates: start: 20130507
  3. ALOPURINOL [Suspect]
     Indication: GOUT
     Dosage: 100 MG, TID
     Route: 048
     Dates: start: 20130417
  4. AZITRIM [Suspect]
     Indication: PHARYNGITIS
     Dosage: 500 MG, QD
     Route: 048
     Dates: start: 20130507, end: 20130507
  5. DIAZEPAM [Concomitant]
  6. HALDOL [Concomitant]

REACTIONS (8)
  - Conjunctival haemorrhage [Unknown]
  - Mouth haemorrhage [Unknown]
  - Testicular oedema [Unknown]
  - Pyrexia [Unknown]
  - Stevens-Johnson syndrome [Unknown]
  - Oral mucosal exfoliation [Unknown]
  - Hypersensitivity [Unknown]
  - Rash maculo-papular [Unknown]
